FAERS Safety Report 15821247 (Version 1)
Quarter: 2019Q1

REPORT INFORMATION
  Report Type: Spontaneous
  Country: US (occurrence: US)
  Receive Date: 20190112
  Receipt Date: 20190112
  Transmission Date: 20190417
  Serious: Yes (Other)
  Sender: FDA-Public Use
  Company Number: None

PATIENT
  Age: 61 Year
  Sex: Female
  Weight: 65.25 kg

DRUGS (1)
  1. TOLCYLEN ANTIFUNGAL SOLUTION [Suspect]
     Active Substance: TOLNAFTATE
     Indication: ONYCHOMYCOSIS
     Dosage: QUANTITY:1 LIQUID LAYER;OTHER ROUTE:APPLIED TO NAILS?
     Dates: start: 20180901, end: 20181219

REACTIONS (4)
  - Nail bed bleeding [None]
  - Onycholysis [None]
  - Contusion [None]
  - Injury [None]

NARRATIVE: CASE EVENT DATE: 20181201
